FAERS Safety Report 6629603-0 (Version None)
Quarter: 2010Q1

REPORT INFORMATION
  Report Type: 
  Country: None (occurrence: None)
  Receive Date: 20100311
  Receipt Date: 20100226
  Transmission Date: 20100710
  Serious: Yes (Hospitalization, Other)
  Sender: FDA-Public Use
  Company Number: US-ELI_LILLY_AND_COMPANY-US200909003733

PATIENT
  Sex: Female
  Weight: 46.032 kg

DRUGS (7)
  1. FORTEO [Suspect]
     Indication: OSTEOPOROSIS
     Dosage: UNK, UNK
     Dates: start: 20090804, end: 20091026
  2. FORTEO [Suspect]
     Dates: start: 20091120
  3. NORVASC [Concomitant]
     Dosage: 10 MG, UNK
  4. BENICAR [Concomitant]
  5. CALTRATE D /00108001/ [Concomitant]
     Dosage: UNK, 2/D
  6. TOPROL-XL [Concomitant]
     Dosage: 25 MG, UNK
  7. ASPIRIN [Concomitant]
     Dosage: 81 MG, UNK

REACTIONS (5)
  - BREAST CANCER [None]
  - COUGH [None]
  - DECREASED APPETITE [None]
  - DYSPEPSIA [None]
  - THROAT IRRITATION [None]
